FAERS Safety Report 8042248 (Version 17)
Quarter: 2015Q4

REPORT INFORMATION
  Report Type: Report from Study
  Country: CA (occurrence: CA)
  Receive Date: 20110718
  Receipt Date: 20151002
  Transmission Date: 20160305
  Serious: Yes (Hospitalization, Other)
  Sender: FDA-Public Use
  Company Number: CA-ROCHE-789108

PATIENT
  Age: 69 Year
  Sex: Female
  Weight: 38.5 kg

DRUGS (6)
  1. ACTEMRA [Suspect]
     Active Substance: TOCILIZUMAB
     Indication: RHEUMATOID ARTHRITIS
     Route: 042
  2. PREDNISONE. [Concomitant]
     Active Substance: PREDNISONE
  3. FLU SHOT [Concomitant]
     Active Substance: INFLUENZA VIRUS VACCINE
     Route: 065
     Dates: start: 20121005, end: 20121005
  4. ACTEMRA [Suspect]
     Active Substance: TOCILIZUMAB
     Route: 042
  5. METHOTREXATE [Concomitant]
     Active Substance: METHOTREXATE
     Indication: RHEUMATOID ARTHRITIS
  6. ACTEMRA [Suspect]
     Active Substance: TOCILIZUMAB
     Route: 042

REACTIONS (23)
  - Road traffic accident [Unknown]
  - Chest pain [Recovered/Resolved]
  - Musculoskeletal pain [Not Recovered/Not Resolved]
  - Abdominal pain upper [Recovered/Resolved]
  - Drug ineffective [Unknown]
  - Hypotension [Unknown]
  - Pain [Not Recovered/Not Resolved]
  - Infusion related reaction [Unknown]
  - Oxygen saturation decreased [Unknown]
  - Limb injury [Unknown]
  - Joint instability [Recovered/Resolved]
  - Nasopharyngitis [Recovered/Resolved]
  - Arthralgia [Not Recovered/Not Resolved]
  - Blood pressure increased [Unknown]
  - Heart rate decreased [Unknown]
  - Influenza [Not Recovered/Not Resolved]
  - General physical health deterioration [Unknown]
  - Lacrimal duct procedure [Unknown]
  - Weight decreased [Unknown]
  - Oxygen saturation decreased [Unknown]
  - Abdominal discomfort [Unknown]
  - Cystitis [Unknown]
  - Gait disturbance [Not Recovered/Not Resolved]

NARRATIVE: CASE EVENT DATE: 201107
